FAERS Safety Report 15664677 (Version 1)
Quarter: 2018Q4

REPORT INFORMATION
  Report Type: Spontaneous
  Country: US (occurrence: US)
  Receive Date: 20181128
  Receipt Date: 20181128
  Transmission Date: 20190205
  Serious: Yes (Other)
  Sender: FDA-Public Use
  Company Number: US-AXELLIA-002077

PATIENT
  Age: 72 Year
  Sex: Male
  Weight: 103 kg

DRUGS (16)
  1. OMEPRAZOLE. [Concomitant]
     Active Substance: OMEPRAZOLE
  2. PREGABALIN. [Concomitant]
     Active Substance: PREGABALIN
  3. TERAZOSIN [Concomitant]
     Active Substance: TERAZOSIN\TERAZOSIN HYDROCHLORIDE
  4. BACLOFEN. [Concomitant]
     Active Substance: BACLOFEN
  5. AMLODIPINE [Concomitant]
     Active Substance: AMLODIPINE BESYLATE
  6. ALLOPURINOL. [Concomitant]
     Active Substance: ALLOPURINOL
  7. DILTIAZEM. [Concomitant]
     Active Substance: DILTIAZEM
  8. ISOSORBIDE MONONITRATE. [Concomitant]
     Active Substance: ISOSORBIDE MONONITRATE
  9. VANCOMYCIN [Suspect]
     Active Substance: VANCOMYCIN
     Indication: ENTEROBACTER INFECTION
     Route: 042
  10. ERTAPENEM/ERTAPENEM SODIUM [Suspect]
     Active Substance: ERTAPENEM
     Indication: ENTEROBACTER INFECTION
     Route: 042
  11. METOPROLOL. [Concomitant]
     Active Substance: METOPROLOL
  12. LOSARTAN. [Concomitant]
     Active Substance: LOSARTAN
  13. LOPERAMIDE [Concomitant]
     Active Substance: LOPERAMIDE
  14. TIZANIDINE. [Concomitant]
     Active Substance: TIZANIDINE
  15. ATORVASTATIN [Concomitant]
     Active Substance: ATORVASTATIN
  16. TRAMADOL. [Concomitant]
     Active Substance: TRAMADOL

REACTIONS (2)
  - Hallucination [Recovered/Resolved]
  - Myoclonus [Recovered/Resolved]
